FAERS Safety Report 13639319 (Version 1)
Quarter: 2017Q2

REPORT INFORMATION
  Report Type: Spontaneous
  Country: US (occurrence: US)
  Receive Date: 20170609
  Receipt Date: 20170609
  Transmission Date: 20170830
  Serious: No
  Sender: FDA-Public Use
  Company Number: US-ROCHE-1437603

PATIENT
  Sex: Female

DRUGS (2)
  1. DURAGESIC [Concomitant]
     Active Substance: FENTANYL
     Indication: PAIN
     Route: 062
  2. KLONOPIN [Suspect]
     Active Substance: CLONAZEPAM
     Indication: PAIN
     Route: 048

REACTIONS (1)
  - Drug ineffective [Unknown]
